FAERS Safety Report 7675650-X (Version None)
Quarter: 2011Q3

REPORT INFORMATION
  Report Type: 
  Country: None (occurrence: None)
  Receive Date: 20110810
  Receipt Date: 20110802
  Transmission Date: 20111222
  Serious: Yes (Death)
  Sender: FDA-Public Use
  Company Number: DE-CELGENEUS-062-20785-11080375

PATIENT
  Age: 3 Year
  Sex: Male

DRUGS (1)
  1. THALIDOMIDE [Suspect]
     Dosage: 100 MILLIGRAM
     Route: 048
     Dates: start: 20110420, end: 20110614

REACTIONS (2)
  - BRAIN CANCER METASTATIC [None]
  - DYSPHAGIA [None]
